FAERS Safety Report 8152132 (Version 3)
Quarter: 2012Q4

REPORT INFORMATION
  Report Type: 
  Country: US (occurrence: US)
  Receive Date: 20110922
  Receipt Date: 20121214
  Transmission Date: 20130627
  Serious: Yes (Other)
  Sender: FDA-Public Use
  Company Number: US-ASTRAZENECA-2011SE27883

PATIENT
  Age: 60 Year
  Sex: Male

DRUGS (3)
  1. SEROQUEL XR [Suspect]
     Indication: MAJOR DEPRESSION
     Route: 048
     Dates: start: 2009, end: 201105
  2. SEROQUEL XR [Suspect]
     Indication: MAJOR DEPRESSION
     Dosage: HALF IN THE MORNING AND HALF IN THE EVENING
     Route: 048
  3. VICODIN [Concomitant]
     Indication: PAIN

REACTIONS (10)
  - Suicidal ideation [Unknown]
  - Stress [Unknown]
  - Depression [Unknown]
  - Feeling jittery [Unknown]
  - Depressed mood [Unknown]
  - Feeling abnormal [Unknown]
  - Mental disorder [Unknown]
  - Dizziness [Unknown]
  - Wrong technique in drug usage process [Unknown]
  - Drug dose omission [Unknown]
